FAERS Safety Report 9175088 (Version 3)
Quarter: 2013Q1

REPORT INFORMATION
  Report Type: Spontaneous
  Country: BE (occurrence: BE)
  Receive Date: 20130320
  Receipt Date: 20130326
  Transmission Date: 20140127
  Serious: Yes (Hospitalization)
  Sender: FDA-Public Use
  Company Number: BE-BAYER-2013-032813

PATIENT
  Age: 86 Year
  Sex: Male

DRUGS (4)
  1. AVELOX [Suspect]
     Indication: BRONCHITIS
     Dosage: 400 MG, QD
  2. MARCOUMAR [Concomitant]
     Indication: ATRIAL FIBRILLATION
  3. BISOPROLOL [Concomitant]
  4. COVERSYL [Concomitant]

REACTIONS (4)
  - Idiopathic thrombocytopenic purpura [Recovering/Resolving]
  - Contusion [Recovering/Resolving]
  - Epistaxis [Recovering/Resolving]
  - Off label use [None]
